FAERS Safety Report 11658070 (Version 2)
Quarter: 2015Q4

REPORT INFORMATION
  Report Type: Report from Study
  Country: US (occurrence: US)
  Receive Date: 20151024
  Receipt Date: 20151028
  Transmission Date: 20160304
  Serious: No
  Sender: FDA-Public Use
  Company Number: US-AMGEN-USASP2015109593

PATIENT
  Age: 50 Year
  Sex: Female

DRUGS (1)
  1. ENBREL [Suspect]
     Active Substance: ETANERCEPT
     Indication: RHEUMATOID ARTHRITIS
     Dosage: 50 MG, QWK
     Route: 065
     Dates: start: 20150909

REACTIONS (8)
  - Inflammation [Unknown]
  - Injection site erythema [Unknown]
  - Injection site urticaria [Unknown]
  - Eye pain [Unknown]
  - Injection site pain [Unknown]
  - Vision blurred [Unknown]
  - Pain [Unknown]
  - Tremor [Unknown]

NARRATIVE: CASE EVENT DATE: 2015
